FAERS Safety Report 7474303-0 (Version None)
Quarter: 2011Q2

REPORT INFORMATION
  Report Type: 
  Country: None (occurrence: None)
  Receive Date: 20110511
  Receipt Date: 20110425
  Transmission Date: 20111010
  Serious: Yes (Death, Other)
  Sender: FDA-Public Use
  Company Number: JP-AMGEN-JPNCT2011023747

PATIENT
  Age: 61 Year
  Sex: Male
  Weight: 56 kg

DRUGS (13)
  1. NEOMALLERMIN TR [Concomitant]
     Route: 048
  2. IRINOTECAN HCL [Suspect]
     Indication: COLORECTAL CANCER
     Route: 041
     Dates: start: 20100901
  3. PURSENNID [Concomitant]
     Dosage: UNK
     Route: 048
  4. DECADRON [Concomitant]
     Dosage: UNK
     Route: 048
  5. SPORAMIN [Concomitant]
     Dosage: UNK
     Route: 042
  6. VECTIBIX [Suspect]
     Dosage: 6 MG/KG, Q2WK
     Route: 041
     Dates: start: 20100901
  7. ANTIHISTAMINES [Concomitant]
     Indication: PROPHYLAXIS
     Dosage: UNK
  8. CORTICOSTEROIDS [Concomitant]
     Indication: PROPHYLAXIS
     Dosage: UNK
  9. LEUCOVORIN CALCIUM [Suspect]
     Indication: COLORECTAL CANCER
     Route: 041
     Dates: start: 20100901
  10. GRAN [Concomitant]
     Dosage: UNK
     Route: 042
  11. FLUOROURACIL [Suspect]
     Indication: COLORECTAL CANCER
     Route: 041
     Dates: start: 20100901
  12. MAGMITT [Concomitant]
     Dosage: UNK
     Route: 048
  13. ALOXI [Concomitant]
     Dosage: UNK
     Route: 042

REACTIONS (4)
  - COLORECTAL CANCER [None]
  - DERMATITIS ACNEIFORM [None]
  - WHITE BLOOD CELL COUNT DECREASED [None]
  - PLATELET COUNT DECREASED [None]
